FAERS Safety Report 7532055-X (Version None)
Quarter: 2011Q2

REPORT INFORMATION
  Report Type: 
  Country: None (occurrence: None)
  Receive Date: 20110608
  Receipt Date: 20110603
  Transmission Date: 20111010
  Serious: Yes (Hospitalization)
  Sender: FDA-Public Use
  Company Number: US-AMGEN-USASP2011027083

PATIENT
  Age: 90 Year
  Sex: Female
  Weight: 104.31 kg

DRUGS (15)
  1. CORTICOSTEROIDS [Concomitant]
  2. METOPROLOL [Concomitant]
     Dosage: 100 MG, BID
  3. RAMIPRIL [Concomitant]
     Dosage: 5 MG, QD
  4. DIGOXIN [Concomitant]
  5. LASIX [Concomitant]
  6. NPLATE [Suspect]
     Indication: IDIOPATHIC THROMBOCYTOPENIC PURPURA
     Dosage: 2.0 A?G/KG, UNK
     Route: 058
     Dates: start: 20110404, end: 20110407
  7. TEMAZEPAM [Concomitant]
     Dosage: 15 MG, UNK
  8. PRANDIN                            /00882701/ [Concomitant]
     Dosage: 1 MG, BID
  9. CALCIUM CARBONATE [Concomitant]
     Dosage: 600 MG, BID
  10. OXYGEN [Concomitant]
  11. LIPITOR [Concomitant]
     Dosage: 10 MG, QD
  12. LORTAB [Concomitant]
     Dosage: 7.5 MG, UNK
  13. DOCUSATE SODIUM [Concomitant]
  14. NEXIUM [Concomitant]
  15. VITAMIN A [Concomitant]
     Dosage: 125 UNIT, BID

REACTIONS (11)
  - MALAISE [None]
  - ASTHENIA [None]
  - DIZZINESS [None]
  - INSOMNIA [None]
  - ANAEMIA [None]
  - FATIGUE [None]
  - OEDEMA PERIPHERAL [None]
  - EYE IRRITATION [None]
  - BLOOD GLUCOSE INCREASED [None]
  - NOCTURIA [None]
  - PERIORBITAL OEDEMA [None]
